FAERS Safety Report 11101545 (Version 3)
Quarter: 2015Q3

REPORT INFORMATION
  Report Type: Spontaneous
  Country: IN (occurrence: IN)
  Receive Date: 20150508
  Receipt Date: 20150701
  Transmission Date: 20151125
  Serious: Yes (Death)
  Sender: FDA-Public Use
  Company Number: IN-GE HEALTHCARE MEDICAL DIAGNOSTICS-VISP-PR-1505S-0167

PATIENT
  Age: 42 Year
  Sex: Male

DRUGS (8)
  1. OPARA [Concomitant]
  2. ZYCEL [Concomitant]
  3. ZINCOVIT [Concomitant]
  4. VISIPAQUE [Suspect]
     Active Substance: IODIXANOL
     Indication: DIAGNOSTIC PROCEDURE
  5. VISIPAQUE [Suspect]
     Active Substance: IODIXANOL
     Indication: GASTROINTESTINAL DISORDER
     Route: 042
     Dates: start: 20150430, end: 20150430
  6. CAL QUICK [Concomitant]
  7. UPRISE [Concomitant]
  8. PAN 40 [Concomitant]

REACTIONS (3)
  - Cardiac arrest [Fatal]
  - Chills [Fatal]
  - Dyspnoea [Fatal]

NARRATIVE: CASE EVENT DATE: 20150430
